FAERS Safety Report 22001299 (Version 1)
Quarter: 2023Q1

REPORT INFORMATION
  Report Type: Report from Study
  Country: KR (occurrence: KR)
  Receive Date: 20230216
  Receipt Date: 20230216
  Transmission Date: 20230418
  Serious: Yes (Hospitalization, Other)
  Sender: FDA-Public Use
  Company Number: KR-OTSUKA-2022_010702

PATIENT
  Age: 55 Year
  Sex: Female

DRUGS (7)
  1. PONATINIB [Suspect]
     Active Substance: PONATINIB
     Indication: Chronic myeloid leukaemia
     Dosage: 45 MILLIGRAM, QD
     Route: 048
     Dates: start: 20220112, end: 20220208
  2. PONATINIB [Suspect]
     Active Substance: PONATINIB
     Dosage: 30 MILLIGRAM, QD
     Route: 048
     Dates: start: 20220209, end: 20220310
  3. PONATINIB [Suspect]
     Active Substance: PONATINIB
     Dosage: 45 MILLIGRAM, QD
     Route: 048
     Dates: start: 20220311, end: 20220314
  4. PONATINIB [Suspect]
     Active Substance: PONATINIB
     Dosage: 45 MILLIGRAM, QD
     Route: 048
     Dates: start: 20220318, end: 20220324
  5. TYLENOL 8HR [Concomitant]
     Active Substance: ACETAMINOPHEN
     Indication: Headache
     Dosage: 1300 MILLIGRAM, QD
     Route: 048
     Dates: start: 20220311, end: 20220315
  6. PENIRAMIN [Concomitant]
     Indication: Premedication
     Dosage: 4 MILLIGRAM, QD
     Route: 042
     Dates: start: 20220311, end: 20220311
  7. PENIRAMIN [Concomitant]
     Indication: Transfusion
     Dosage: 4 MILLIGRAM
     Route: 065

REACTIONS (6)
  - Optic neuritis [Recovering/Resolving]
  - Platelet count decreased [Not Recovered/Not Resolved]
  - Oedema [Recovered/Resolved]
  - Dyspepsia [Recovered/Resolved]
  - Rash [Recovered/Resolved]
  - Hypertension [Recovered/Resolved]

NARRATIVE: CASE EVENT DATE: 20220113
